FAERS Safety Report 23680268 (Version 1)
Quarter: 2024Q1

REPORT INFORMATION
  Report Type: Report from Study
  Country: US (occurrence: US)
  Receive Date: 20240327
  Receipt Date: 20240327
  Transmission Date: 20240409
  Serious: Yes (Other)
  Sender: FDA-Public Use
  Company Number: US-ABBVIE-5692800

PATIENT
  Sex: Male

DRUGS (1)
  1. DIVALPROEX SODIUM [Suspect]
     Active Substance: DIVALPROEX SODIUM
     Indication: Product used for unknown indication
     Dosage: DELAYED RELEASE, FORM STRENGTH: 500 MILLIGRAM, FREQUENCY: AT NIGHT
     Route: 048

REACTIONS (3)
  - General physical health deterioration [Unknown]
  - Epilepsy [Unknown]
  - Seizure [Unknown]
